FAERS Safety Report 20404033 (Version 1)
Quarter: 2022Q1

REPORT INFORMATION
  Report Type: Spontaneous
  Country: US (occurrence: US)
  Receive Date: 20220131
  Receipt Date: 20220131
  Transmission Date: 20220423
  Serious: Yes (Other)
  Sender: FDA-Public Use
  Company Number: US-STRIDES ARCOLAB LIMITED-2021SP004640

PATIENT
  Age: 2 Month
  Sex: Female

DRUGS (7)
  1. CALCITRIOL [Suspect]
     Active Substance: CALCITRIOL
     Indication: Hypocalcaemia
     Dosage: 0.15 MICROGRAM DAILY
     Route: 065
  2. CALCITRIOL [Suspect]
     Active Substance: CALCITRIOL
     Dosage: 0.5 MICROGRAM DAILY
     Route: 065
  3. CALCITRIOL [Suspect]
     Active Substance: CALCITRIOL
     Dosage: FROM THE AGE OF 1 YEAR TO AGE OF 9.5 YEARS, SHE RECEIVED VARIED DOSES
     Route: 065
  4. CALCIUM CARBONATE [Suspect]
     Active Substance: CALCIUM CARBONATE
     Indication: Hypocalcaemia
     Dosage: CALCIUM CARBONATE EQUIVALENT TO 400MG ELEMENTAL CALCIUM DAILY
     Route: 065
  5. CALCIUM CARBONATE [Suspect]
     Active Substance: CALCIUM CARBONATE
     Dosage: ORAL CALCIUM CARBONATE (EQUIVALENT TO 2000MG ELEMENTAL CALCIUM DAILY)
     Route: 048
  6. CALCIUM CARBONATE [Suspect]
     Active Substance: CALCIUM CARBONATE
     Dosage: FROM THE AGE OF 1 YEAR TO AGE OF 9.5 YEARS, SHE RECEIVED VARIED DOSES
     Route: 065
  7. DEXTROSE\WATER [Concomitant]
     Active Substance: DEXTROSE\WATER
     Indication: Product used for unknown indication
     Dosage: 60/40 UNITS UNSPECIFIED
     Route: 065

REACTIONS (2)
  - Nephrocalcinosis [Not Recovered/Not Resolved]
  - Hypercalciuria [Recovered/Resolved]
